FAERS Safety Report 10156735 (Version 1)
Quarter: 2014Q2

REPORT INFORMATION
  Report Type: Spontaneous
  Country: US (occurrence: US)
  Receive Date: 20140507
  Receipt Date: 20140507
  Transmission Date: 20141212
  Serious: No
  Sender: FDA-Public Use
  Company Number: US-009507513-1405USA001220

PATIENT
  Sex: Female
  Weight: 52.15 kg

DRUGS (1)
  1. ZEGERID OTC CAPSULES [Suspect]
     Indication: GASTRITIS
     Dosage: 20 MG, QD
     Route: 048
     Dates: start: 2009

REACTIONS (3)
  - Incorrect drug administration duration [Unknown]
  - Off label use [Unknown]
  - Product quality issue [Unknown]
